FAERS Safety Report 4444802-4 (Version None)
Quarter: 2004Q3

REPORT INFORMATION
  Report Type: 
  Country: None (occurrence: None)
  Receive Date: 20040909
  Receipt Date: 20040825
  Transmission Date: 20050211
  Serious: Yes (Other)
  Sender: FDA-Public Use
  Company Number: US-MERCK-0408USA01957

PATIENT
  Age: 61 Year
  Sex: Female

DRUGS (4)
  1. LIPITOR [Suspect]
     Indication: BLOOD CHOLESTEROL INCREASED
     Route: 048
     Dates: end: 20040601
  2. ZETIA [Suspect]
     Indication: BLOOD CHOLESTEROL INCREASED
     Route: 048
     Dates: start: 20030101, end: 20040601
  3. NICOTINE POLACRILEX [Suspect]
     Indication: EX-SMOKER
     Route: 065
     Dates: start: 20040316
  4. ZOLOFT [Suspect]
     Route: 065

REACTIONS (1)
  - HEPATIC ENZYME INCREASED [None]
